FAERS Safety Report 5193411-0 (Version None)
Quarter: 2006Q4

REPORT INFORMATION
  Report Type: 
  Country: None (occurrence: None)
  Receive Date: 20061228
  Receipt Date: 20060425
  Transmission Date: 20070319
  Serious: No
  Sender: FDA-Public Use
  Company Number: US-GLAXOSMITHKLINE-A0603237A

PATIENT
  Age: 12 Year
  Sex: Female

DRUGS (8)
  1. TRIZIVIR [Suspect]
     Indication: HIV INFECTION
     Dosage: 1TAB TWICE PER DAY
     Route: 048
  2. ABACAVIR [Suspect]
     Route: 048
  3. ZIDOVUDINE [Suspect]
     Route: 048
  4. LAMIVUDINE [Suspect]
     Route: 048
  5. CLINDAMYCIN [Concomitant]
     Route: 042
  6. TYLENOL [Concomitant]
  7. IV FLUIDS [Concomitant]
  8. ROXICET [Concomitant]

REACTIONS (2)
  - NAUSEA [None]
  - VOMITING [None]
